FAERS Safety Report 5042441-8 (Version None)
Quarter: 2006Q3

REPORT INFORMATION
  Report Type: 
  Country: None (occurrence: None)
  Receive Date: 20060705
  Receipt Date: 20060622
  Transmission Date: 20061208
  Serious: Yes (Other)
  Sender: FDA-Public Use
  Company Number: PHBS2006BE09329

PATIENT
  Age: 51 Year
  Sex: Male

DRUGS (4)
  1. SANDOSTATIN [Suspect]
     Indication: PANCREATITIS NECROTISING
     Dosage: 0.5 MG, TID
     Route: 058
     Dates: start: 20051001, end: 20051101
  2. SANDOSTATIN LAR [Suspect]
     Indication: PANCREATITIS NECROTISING
     Dosage: 20 MG, QMO
     Route: 030
     Dates: start: 20051101, end: 20060501
  3. DILTIAZEM HCL [Concomitant]
  4. SLEEPING PILL [Concomitant]

REACTIONS (4)
  - ADRENAL CARCINOMA [None]
  - PANCREATIC FISTULA [None]
  - PANCREATIC LESION EXCISION [None]
  - PANCREATIC PSEUDOCYST [None]
